FAERS Safety Report 19847429 (Version 1)
Quarter: 2021Q3

REPORT INFORMATION
  Report Type: Spontaneous
  Country: IT (occurrence: IT)
  Receive Date: 20210917
  Receipt Date: 20210917
  Transmission Date: 20211014
  Serious: Yes (Other)
  Sender: FDA-Public Use
  Company Number: IT-PFIZER INC-202101174214

PATIENT
  Sex: Male
  Weight: 89 kg

DRUGS (12)
  1. RIOCIGUAT. [Suspect]
     Active Substance: RIOCIGUAT
     Dosage: 7.5 MG
     Route: 048
     Dates: start: 20180112
  2. OPSUMIT [Suspect]
     Active Substance: MACITENTAN
     Indication: PULMONARY ARTERIAL HYPERTENSION
     Dosage: 10 MG
     Route: 048
     Dates: start: 20150101
  3. AMIODARONE [Concomitant]
     Active Substance: AMIODARONE
     Indication: ATRIAL FLUTTER
     Dosage: UNK
     Route: 048
     Dates: start: 20150101
  4. SILDENAFIL CITRATE. [Suspect]
     Active Substance: SILDENAFIL CITRATE
     Indication: PULMONARY HYPERTENSION
     Dosage: 60 MG
     Route: 048
     Dates: start: 20090101
  5. RIOCIGUAT. [Suspect]
     Active Substance: RIOCIGUAT
     Dosage: 6 MG
     Route: 048
     Dates: start: 20171229
  6. FUROSEMIDE. [Concomitant]
     Active Substance: FUROSEMIDE
     Indication: PULMONARY ARTERIAL HYPERTENSION
     Dosage: UNK
     Route: 048
     Dates: start: 20170109
  7. RIOCIGUAT. [Suspect]
     Active Substance: RIOCIGUAT
     Dosage: 3 MG
     Route: 048
     Dates: start: 20171201
  8. RIOCIGUAT. [Suspect]
     Active Substance: RIOCIGUAT
     Dosage: 4.5 MG
     Route: 048
     Dates: start: 20171215
  9. TRACLEER [Concomitant]
     Active Substance: BOSENTAN
     Indication: PULMONARY ARTERIAL HYPERTENSION
     Dosage: UNK
     Dates: start: 20080101, end: 20141231
  10. ROSUVASTATIN. [Concomitant]
     Active Substance: ROSUVASTATIN
     Indication: DYSLIPIDAEMIA
     Dosage: UNK
     Route: 048
     Dates: start: 20170714
  11. WARFARIN [Concomitant]
     Active Substance: WARFARIN
     Indication: PULMONARY ARTERIAL HYPERTENSION
     Dosage: UNK
     Route: 048
     Dates: start: 19870101
  12. UPTRAVI [Suspect]
     Active Substance: SELEXIPAG
     Indication: PULMONARY ARTERIAL HYPERTENSION
     Dosage: 400 UG
     Route: 048
     Dates: start: 20210825

REACTIONS (5)
  - Pulmonary arterial hypertension [Unknown]
  - Arrhythmia [Unknown]
  - Disease progression [Unknown]
  - Hyperlipidaemia [Unknown]
  - Arteriosclerosis coronary artery [Unknown]

NARRATIVE: CASE EVENT DATE: 2015
